FAERS Safety Report 4367192-4 (Version None)
Quarter: 2004Q2

REPORT INFORMATION
  Report Type: 
  Country: None (occurrence: None)
  Receive Date: 20040528
  Receipt Date: 20030107
  Transmission Date: 20050107
  Serious: Yes (Other)
  Sender: FDA-Public Use
  Company Number: PHBS2003CA00554

PATIENT
  Age: 27 Year
  Sex: Female

DRUGS (4)
  1. MISOPROSTOL [Concomitant]
  2. NPH INSULIN [Concomitant]
     Indication: HYPERGLYCAEMIA
  3. HUMALOG [Concomitant]
     Indication: HYPERGLYCAEMIA
  4. CLOZARIL [Suspect]
     Route: 048

REACTIONS (3)
  - DRUG EXPOSURE DURING PREGNANCY [None]
  - HYPERGLYCAEMIA [None]
  - INTRA-UTERINE DEATH [None]
